FAERS Safety Report 10952300 (Version 1)
Quarter: 2015Q1

REPORT INFORMATION
  Report Type: Spontaneous
  Country: US (occurrence: US)
  Receive Date: 20150325
  Receipt Date: 20150325
  Transmission Date: 20150721
  Serious: Yes (Other)
  Sender: FDA-Public Use
  Company Number: US-JNJCP-30000272002

PATIENT
  Sex: Female
  Weight: 77 kg

DRUGS (5)
  1. NEUTROGENA PRODUCTS [Suspect]
     Active Substance: UNSPECIFIED INGREDIENT
     Indication: PROPHYLAXIS
     Route: 061
  2. CALCIUM CHEWABLE [Concomitant]
     Indication: ROUTINE HEALTH MAINTENANCE
     Dosage: ONE OR TWICE A DAY SINCE ALEAST FIVE YEARS
  3. NEUTROGENA ULTRA GENTLE DAILY CLEANSER [Suspect]
     Active Substance: COSMETICS
     Indication: REMOVAL OF INERT MATTER FROM SKIN OR SUBCUTANEOUS TISSUE
     Dosage: TWICE A DAY, AT LEAST A COUPLE OF YEARS
     Route: 061
  4. MULTI VITAMIN [Concomitant]
     Active Substance: VITAMINS
     Indication: ROUTINE HEALTH MAINTENANCE
     Dosage: ONCE A DAY SINCE AT LEAST TEN YEARS
  5. NEUTROGENA PRODUCTS [Suspect]
     Active Substance: UNSPECIFIED INGREDIENT
     Indication: DRY SKIN PROPHYLAXIS
     Route: 061

REACTIONS (1)
  - Skin cancer [Unknown]
